FAERS Safety Report 20190577 (Version 1)
Quarter: 2021Q4

REPORT INFORMATION
  Report Type: Spontaneous
  Country: US (occurrence: None)
  Receive Date: 20211216
  Receipt Date: 20211216
  Transmission Date: 20220303
  Serious: No
  Sender: FDA-Public Use
  Company Number: US-MDD US Operations-2020SUP00819

PATIENT
  Sex: Female

DRUGS (3)
  1. TROKENDI XR [Suspect]
     Active Substance: TOPIRAMATE
     Indication: Headache
     Dosage: 25 MG, 1X/DAY
     Dates: start: 20201215, end: 202012
  2. TROKENDI XR [Suspect]
     Active Substance: TOPIRAMATE
  3. TROKENDI XR [Suspect]
     Active Substance: TOPIRAMATE
     Indication: Headache
     Dosage: 50 MG, 1X/DAY
     Dates: start: 202012

REACTIONS (3)
  - Weight increased [Not Recovered/Not Resolved]
  - Constipation [Not Recovered/Not Resolved]
  - Drug ineffective for unapproved indication [Not Recovered/Not Resolved]

NARRATIVE: CASE EVENT DATE: 20201201
